FAERS Safety Report 23153949 (Version 1)
Quarter: 2023Q4

REPORT INFORMATION
  Report Type: Spontaneous
  Country: US (occurrence: None)
  Receive Date: 20231106
  Receipt Date: 20231106
  Transmission Date: 20240110
  Serious: Yes (Disabling)
  Sender: FDA-Public Use
  Company Number: None

PATIENT
  Age: 76 Year
  Sex: Female
  Weight: 56.7 kg

DRUGS (22)
  1. FOSAMAX [Suspect]
     Active Substance: ALENDRONATE SODIUM
  2. AMITRIPTYLINE [Concomitant]
     Active Substance: AMITRIPTYLINE
  3. ZOLPIDEM [Concomitant]
     Active Substance: ZOLPIDEM TARTRATE
  4. SULFACETAMIDE [Concomitant]
     Active Substance: SULFACETAMIDE
  5. LATANOPROST [Concomitant]
     Active Substance: LATANOPROST
  6. METOPROLOL [Concomitant]
     Active Substance: METOPROLOL
  7. POTASSIUM [Concomitant]
     Active Substance: POTASSIUM
  8. MAGNESIUM [Concomitant]
     Active Substance: MAGNESIUM
  9. VITAMIN C [Concomitant]
     Active Substance: ASCORBIC ACID
  10. MINERALS\VITAMINS [Concomitant]
     Active Substance: MINERALS\VITAMINS
  11. ZYRTEC [Concomitant]
     Active Substance: CETIRIZINE HYDROCHLORIDE
  12. Prime Mind Fuel [Concomitant]
  13. Glucosamine Chondroitin MSM [Concomitant]
  14. VITAMIN D3 [Concomitant]
     Active Substance: CHOLECALCIFEROL
  15. OMEGA 3 [Concomitant]
     Active Substance: CAPSAICIN
  16. OMEGA 3 [Concomitant]
     Active Substance: CAPSAICIN
  17. EMMA [Concomitant]
  18. FAMOTIDINE [Concomitant]
     Active Substance: FAMOTIDINE
  19. HERBALS\TURMERIC [Concomitant]
     Active Substance: HERBALS\TURMERIC
  20. REFRESH RELIEVA [Concomitant]
     Active Substance: CARBOXYMETHYLCELLULOSE SODIUM\GLYCERIN
  21. BISACODYL [Concomitant]
     Active Substance: BISACODYL
  22. MIRALAX [Concomitant]
     Active Substance: POLYETHYLENE GLYCOL 3350

REACTIONS (1)
  - Osteonecrosis of jaw [None]

NARRATIVE: CASE EVENT DATE: 20231010
